FAERS Safety Report 5171604-6 (Version None)
Quarter: 2006Q4

REPORT INFORMATION
  Report Type: 
  Country: None (occurrence: None)
  Receive Date: 20061213
  Receipt Date: 20061205
  Transmission Date: 20070319
  Serious: Yes (Other)
  Sender: FDA-Public Use
  Company Number: US-ROCHE-474090

PATIENT
  Sex: Female

DRUGS (1)
  1. BONIVA [Suspect]
     Indication: DRUG USE FOR UNKNOWN INDICATION
     Route: 048
     Dates: start: 20060915

REACTIONS (4)
  - DIARRHOEA [None]
  - RESORPTION BONE INCREASED [None]
  - TOOTH DISORDER [None]
  - TOOTH EXTRACTION [None]
